FAERS Safety Report 4451959-8 (Version None)
Quarter: 2004Q3

REPORT INFORMATION
  Report Type: 
  Country: None (occurrence: None)
  Receive Date: 20040917
  Receipt Date: 20040909
  Transmission Date: 20050211
  Serious: Yes (Life-Threatening, Hospitalization)
  Sender: FDA-Public Use
  Company Number: AU-BRISTOL-MYERS SQUIBB COMPANY-12697314

PATIENT
  Age: 75 Year
  Sex: Male

DRUGS (4)
  1. IFOSFAMIDE [Suspect]
     Indication: LYMPHOMA
     Dates: start: 20040812, end: 20040812
  2. GEMZAR [Suspect]
     Indication: LYMPHOMA
     Route: 042
     Dates: start: 20040812, end: 20040812
  3. NAVELBINE [Suspect]
     Indication: LYMPHOMA
     Dates: start: 20040812, end: 20040812
  4. PEGFILGRASTIM [Suspect]
     Indication: LYMPHOMA
     Dates: start: 20040821, end: 20040821

REACTIONS (5)
  - ATRIAL FIBRILLATION [None]
  - FLUID RETENTION [None]
  - LYMPHOMA [None]
  - MUCOSAL INFLAMMATION [None]
  - NEUTROPENIC SEPSIS [None]
